FAERS Safety Report 8548450-6 (Version None)
Quarter: 2012Q3

REPORT INFORMATION
  Report Type: 
  Country: None (occurrence: None)
  Receive Date: 20120730
  Receipt Date: 20120723
  Transmission Date: 20120928
  Serious: Yes (Hospitalization)
  Sender: FDA-Public Use
  Company Number: US-MSD-1207USA010774

PATIENT

DRUGS (3)
  1. VICTRELIS [Suspect]
     Indication: HEPATITIS C
     Dosage: UNK
     Dates: start: 20120401
  2. PEG-INTRON [Suspect]
     Indication: HEPATITIS C
     Dosage: 0.5 ML, UNK
     Route: 058
     Dates: start: 20120301, end: 20120401
  3. PEG-INTRON [Suspect]
     Dosage: 0.4 ML, UNK
     Route: 058
     Dates: start: 20120401

REACTIONS (7)
  - INFLUENZA LIKE ILLNESS [None]
  - PAIN [None]
  - DIZZINESS [None]
  - DYSPNOEA [None]
  - HEADACHE [None]
  - FATIGUE [None]
  - OCULAR HYPERAEMIA [None]
